FAERS Safety Report 8960786 (Version 2)
Quarter: 2013Q1

REPORT INFORMATION
  Report Type: Spontaneous
  Country: US (occurrence: US)
  Receive Date: 20121213
  Receipt Date: 20130128
  Transmission Date: 20140127
  Serious: Yes (Other)
  Sender: FDA-Public Use
  Company Number: PHEH2012US024043

PATIENT
  Sex: Female

DRUGS (8)
  1. DIOVAN [Suspect]
  2. LOSARTAN [Suspect]
     Dosage: 100 MG, UNK
  3. GLIPIZIDE [Concomitant]
     Dosage: 10 MG 4 TIMES A DAY
  4. METFORMIN HYDROCHLORIDE [Concomitant]
     Dosage: 1000 MG, BID
  5. B-12 [Concomitant]
  6. HYDROCHLOROTHIAZIDE [Concomitant]
  7. POTASSIUM [Concomitant]
  8. DILANTIN [Concomitant]

REACTIONS (2)
  - Breast cancer [Unknown]
  - Blood pressure inadequately controlled [Unknown]
